FAERS Safety Report 6262580-3 (Version None)
Quarter: 2009Q3

REPORT INFORMATION
  Report Type: 
  Country: None (occurrence: None)
  Receive Date: 20090709
  Receipt Date: 20090706
  Transmission Date: 20100115
  Serious: Yes (Death, Hospitalization)
  Sender: FDA-Public Use
  Company Number: US-ELI_LILLY_AND_COMPANY-US200902002053

PATIENT
  Sex: Male

DRUGS (7)
  1. BYETTA [Suspect]
     Dosage: 5 UG, 2/D
     Dates: start: 20070716, end: 20070816
  2. BYETTA [Suspect]
     Dosage: 10 UG, 2/D
     Dates: start: 20070816, end: 20090201
  3. BYETTA [Suspect]
     Dosage: 10 UG, 2/D
     Dates: start: 20090206, end: 20090209
  4. NEXIUM [Concomitant]
     Indication: GASTROOESOPHAGEAL REFLUX DISEASE
     Dosage: 40 MG, UNK
     Dates: start: 19890101
  5. ALTACE [Concomitant]
     Indication: HYPERTENSION
     Dosage: 5 MG, UNK
  6. FUROSEMIDE [Concomitant]
     Indication: CARDIAC FAILURE CONGESTIVE
  7. CELEBREX [Concomitant]
     Indication: OSTEOARTHRITIS

REACTIONS (3)
  - CARDIAC ARREST [None]
  - DEHYDRATION [None]
  - GASTRITIS [None]
